FAERS Safety Report 4664392-0 (Version None)
Quarter: 2005Q2

REPORT INFORMATION
  Report Type: 
  Country: None (occurrence: None)
  Receive Date: 20050518
  Receipt Date: 20050510
  Transmission Date: 20051028
  Serious: Yes (Hospitalization)
  Sender: FDA-Public Use
  Company Number: NO-MERCK-0505NOR00010

PATIENT
  Age: 72 Year
  Sex: Female

DRUGS (8)
  1. METOPROLOL TARTRATE [Concomitant]
     Indication: HYPERTENSION
     Route: 065
  2. ASPIRIN AND MAGNESIUM OXIDE [Concomitant]
     Route: 065
  3. FOSAMAX [Concomitant]
     Indication: OSTEOPOROSIS
     Route: 065
  4. PREDNISOLONE [Concomitant]
     Indication: PSORIATIC ARTHROPATHY
     Route: 065
  5. OMEGA-3 MARINE TRIGLYCERIDES [Concomitant]
     Route: 065
  6. CLINDAMYCIN HYDROCHLORIDE [Concomitant]
     Indication: LOCALISED INFECTION
     Route: 065
  7. VIOXX [Suspect]
     Indication: PSORIATIC ARTHROPATHY
     Route: 048
     Dates: start: 20010717, end: 20031201
  8. ISOSORBIDE MONONITRATE [Concomitant]
     Indication: ANGINA PECTORIS
     Route: 065

REACTIONS (1)
  - MYOCARDIAL INFARCTION [None]
